FAERS Safety Report 6746676-5 (Version None)
Quarter: 2010Q2

REPORT INFORMATION
  Report Type: 
  Country: None (occurrence: None)
  Receive Date: 20100528
  Receipt Date: 20100521
  Transmission Date: 20101027
  Serious: Yes (Other)
  Sender: FDA-Public Use
  Company Number: ES-PFIZER INC-2010063908

PATIENT
  Age: 79 Year
  Sex: Female

DRUGS (5)
  1. CARDURA [Suspect]
     Indication: HYPERTENSION
     Dosage: 4 MG, 1X/DAY
     Route: 048
     Dates: end: 20100501
  2. CARDURA [Interacting]
     Dosage: 8 MG, 1X/DAY
     Route: 048
     Dates: start: 20100501, end: 20100501
  3. CARDURA [Interacting]
     Dosage: 4 MG, 1X/DAY
     Route: 048
     Dates: start: 20100501
  4. SINTROM [Interacting]
     Indication: THROMBOSIS PROPHYLAXIS
     Dosage: UNK
     Route: 048
  5. DILTIAZEM [Concomitant]
     Dosage: UNK

REACTIONS (4)
  - DRUG INTERACTION [None]
  - HAEMATOMA [None]
  - HYPERTENSION [None]
  - INTERNATIONAL NORMALISED RATIO INCREASED [None]
